FAERS Safety Report 6481834-9 (Version None)
Quarter: 2009Q4

REPORT INFORMATION
  Report Type: 
  Country: None (occurrence: None)
  Receive Date: 20091208
  Receipt Date: 20091202
  Transmission Date: 20100525
  Serious: Yes (Other)
  Sender: FDA-Public Use
  Company Number: DE-CVT-090793

PATIENT

DRUGS (4)
  1. RANEXA [Suspect]
     Indication: CORONARY ARTERY DISEASE
     Dosage: 500 MG, QD
     Route: 048
     Dates: start: 20090801, end: 20090901
  2. DIGITOXIN INJ [Concomitant]
     Indication: CORONARY ARTERY DISEASE
  3. LISINOPRIL                         /00894001/ [Concomitant]
     Indication: CORONARY ARTERY DISEASE
  4. FALITHROM [Concomitant]
     Indication: ATRIAL FIBRILLATION

REACTIONS (2)
  - ORTHOSTATIC HYPOTENSION [None]
  - SYNCOPE [None]
